FAERS Safety Report 8653013 (Version 2)
Quarter: 2014Q1

REPORT INFORMATION
  Report Type: Spontaneous
  Country: US (occurrence: US)
  Receive Date: 20120706
  Receipt Date: 20140312
  Transmission Date: 20141002
  Serious: No
  Sender: FDA-Public Use
  Company Number: US-B.I. PHARMACEUTICALS,INC./RIDGEFIELD-2012-BP-14635BP

PATIENT
  Sex: Male
  Weight: 68 kg

DRUGS (7)
  1. MICARDIS [Suspect]
     Indication: HYPERTENSION
     Dosage: 20 MG
     Route: 048
     Dates: start: 2013, end: 201312
  2. MICARDIS [Suspect]
     Dosage: 40 MG
     Route: 048
     Dates: start: 201312, end: 20140223
  3. MICARDIS [Suspect]
     Dosage: 60 MG
     Route: 048
     Dates: start: 20140223, end: 20140225
  4. MICARDIS [Suspect]
     Dosage: 40 MG
     Route: 048
     Dates: start: 20140226
  5. TOPROL [Concomitant]
     Indication: HYPERTENSION
     Dosage: 25 MG
     Route: 048
  6. POTASSIUM SUPPLEMENT [Concomitant]
     Indication: CARDIAC DISORDER
     Dosage: 80 MEQ
     Route: 048
  7. INSPRA [Concomitant]
     Indication: HYPERTENSION
     Route: 048
     Dates: end: 20120620

REACTIONS (10)
  - Somnolence [Not Recovered/Not Resolved]
  - Decreased interest [Not Recovered/Not Resolved]
  - Disturbance in attention [Not Recovered/Not Resolved]
  - Dyspnoea [Not Recovered/Not Resolved]
  - Hypoacusis [Not Recovered/Not Resolved]
  - Dizziness [Not Recovered/Not Resolved]
  - Gait disturbance [Not Recovered/Not Resolved]
  - Local swelling [Not Recovered/Not Resolved]
  - Tinnitus [Not Recovered/Not Resolved]
  - Dyspnoea [Not Recovered/Not Resolved]
